FAERS Safety Report 13587317 (Version 3)
Quarter: 2017Q3

REPORT INFORMATION
  Report Type: Spontaneous
  Country: GR (occurrence: GR)
  Receive Date: 20170526
  Receipt Date: 20170711
  Transmission Date: 20171127
  Serious: Yes (Death, Hospitalization)
  Sender: FDA-Public Use
  Company Number: PHHY2017GR076740

PATIENT
  Age: 78 Year
  Sex: Female

DRUGS (1)
  1. REVOLADE [Suspect]
     Active Substance: ELTROMBOPAG
     Indication: APLASTIC ANAEMIA
     Dosage: 150 MG, QD
     Route: 048
     Dates: start: 20160405

REACTIONS (5)
  - Neutropenia [Fatal]
  - Sepsis [Fatal]
  - Gastroenteritis [Fatal]
  - Therapeutic response decreased [Unknown]
  - Jaundice [Fatal]
